FAERS Safety Report 21642420 (Version 1)
Quarter: 2022Q4

REPORT INFORMATION
  Report Type: Spontaneous
  Country: PT (occurrence: PT)
  Receive Date: 20221125
  Receipt Date: 20221125
  Transmission Date: 20230112
  Serious: Yes (Death, Other)
  Sender: FDA-Public Use
  Company Number: PT-GLAXOSMITHKLINE-PTCH2022GSK045695

PATIENT

DRUGS (1)
  1. DICLOFENAC [Suspect]
     Active Substance: DICLOFENAC
     Indication: Product used for unknown indication
     Dosage: UNK

REACTIONS (7)
  - Toxic epidermal necrolysis [Unknown]
  - Acute respiratory distress syndrome [Fatal]
  - Pneumonia [Fatal]
  - Skin lesion [Unknown]
  - Blister [Unknown]
  - Mucocutaneous disorder [Unknown]
  - Pain [Unknown]
